FAERS Safety Report 19958475 (Version 2)
Quarter: 2021Q4

REPORT INFORMATION
  Report Type: Spontaneous
  Country: US (occurrence: US)
  Receive Date: 20211015
  Receipt Date: 20211021
  Transmission Date: 20220303
  Serious: Yes (Other)
  Sender: FDA-Public Use
  Company Number: US-JNJFOC-20211022686

PATIENT
  Age: 24 Year
  Sex: Female

DRUGS (6)
  1. ZYRTEC [Suspect]
     Active Substance: CETIRIZINE HYDROCHLORIDE
     Indication: Urticaria
     Route: 065
     Dates: start: 20210105
  2. BENADRYL [Suspect]
     Active Substance: DIPHENHYDRAMINE HYDROCHLORIDE
     Indication: Urticaria
     Route: 065
     Dates: start: 20210105
  3. BENADRYL [Suspect]
     Active Substance: DIPHENHYDRAMINE HYDROCHLORIDE
     Indication: Urticaria
     Route: 061
     Dates: start: 20210105
  4. COVID-19 VACCINE NOS [Suspect]
     Active Substance: COVID-19 VACCINE NOS
     Indication: Product used for unknown indication
     Dosage: AT 12:00 HOUR
     Route: 030
     Dates: start: 20210104
  5. HYDROCORTISONE [Concomitant]
     Active Substance: HYDROCORTISONE
     Indication: Urticaria
     Route: 065
     Dates: start: 20210106
  6. HYDROCORTISONE [Concomitant]
     Active Substance: HYDROCORTISONE
     Route: 065
     Dates: start: 20210109

REACTIONS (9)
  - Hypoaesthesia [Unknown]
  - Paraesthesia [Unknown]
  - Vertigo [Unknown]
  - Chills [Unknown]
  - Headache [Recovered/Resolved]
  - Fatigue [Unknown]
  - Nausea [Unknown]
  - Overdose [Unknown]
  - Product use in unapproved indication [Unknown]

NARRATIVE: CASE EVENT DATE: 20210106
